FAERS Safety Report 5391462-4 (Version None)
Quarter: 2007Q3

REPORT INFORMATION
  Report Type: 
  Country: None (occurrence: None)
  Receive Date: 20070719
  Receipt Date: 20070711
  Transmission Date: 20080115
  Serious: Yes (Life-Threatening, Hospitalization)
  Sender: FDA-Public Use
  Company Number: FR-AMGEN-US219105

PATIENT
  Sex: Female
  Weight: 54 kg

DRUGS (3)
  1. ENBREL [Suspect]
     Indication: RHEUMATOID ARTHRITIS
     Dosage: UNKNOWN
     Route: 058
     Dates: start: 20000201, end: 20000801
  2. ENBREL [Suspect]
     Dosage: UNKNOWN
     Route: 058
     Dates: start: 20011001, end: 20070115
  3. LEFLUNOMIDE [Suspect]
     Indication: RHEUMATOID ARTHRITIS
     Route: 048
     Dates: start: 20010401, end: 20070115

REACTIONS (6)
  - ASTHENIA [None]
  - HYPERGAMMAGLOBULINAEMIA [None]
  - INFECTION [None]
  - INFLAMMATION [None]
  - LEUKOPENIA [None]
  - PERIPHERAL T-CELL LYMPHOMA UNSPECIFIED [None]
